FAERS Safety Report 8350404 (Version 1)
Quarter: 2020Q3

REPORT INFORMATION
  Report Type: Report from Study
  Country: DE (occurrence: DE)
  Receive Date: 20120124
  Receipt Date: 20120124
  Transmission Date: 20201104
  Serious: Yes (Hospitalization)
  Sender: FDA-Public Use
  Company Number: DE-JNJFOC-20070507017

PATIENT
  Age: 37 Year
  Sex: Female
  Weight: 95.8 kg

DRUGS (16)
  1. GOLIMUMAB [Suspect]
     Active Substance: GOLIMUMAB
     Route: 058
     Dates: start: 20061205
  2. LEVOTHYROXINE SODIUM. [Concomitant]
     Active Substance: LEVOTHYROXINE SODIUM
     Route: 048
     Dates: start: 1984
  3. IBUPROFEN. [Concomitant]
     Active Substance: IBUPROFEN
     Route: 048
     Dates: start: 20061221
  4. MIZOLASTINE [Concomitant]
     Active Substance: MIZOLASTINE
     Route: 048
     Dates: start: 200503
  5. TOREM [Concomitant]
     Active Substance: TORSEMIDE
     Route: 048
     Dates: start: 20070523
  6. GOLIMUMAB [Suspect]
     Active Substance: GOLIMUMAB
     Route: 058
     Dates: start: 20061109
  7. GOLIMUMAB [Suspect]
     Active Substance: GOLIMUMAB
     Route: 058
     Dates: start: 20070103
  8. GOLIMUMAB [Suspect]
     Active Substance: GOLIMUMAB
     Route: 058
     Dates: start: 20061005
  9. MORPHINE [Concomitant]
     Active Substance: MORPHINE
     Route: 048
     Dates: start: 200503, end: 20061122
  10. MORPHINE [Concomitant]
     Active Substance: MORPHINE
     Route: 048
     Dates: start: 20061123
  11. GOLIMUMAB [Suspect]
     Active Substance: GOLIMUMAB
     Indication: ANKYLOSING SPONDYLITIS
     Route: 058
     Dates: start: 20070521
  12. HYGROTON [Concomitant]
     Active Substance: CHLORTHALIDONE
     Route: 048
     Dates: start: 20070424
  13. GOLIMUMAB [Suspect]
     Active Substance: GOLIMUMAB
     Route: 058
     Dates: start: 20070129
  14. LAXOBERAL [Concomitant]
     Active Substance: SODIUM PICOSULFATE
     Route: 048
     Dates: start: 200503
  15. BELOC?ZOK [Concomitant]
     Active Substance: METOPROLOL SUCCINATE
     Route: 048
     Dates: start: 20061122
  16. GOLIMUMAB [Suspect]
     Active Substance: GOLIMUMAB
     Route: 058
     Dates: start: 20060911

REACTIONS (2)
  - Paraesthesia [Not Recovered/Not Resolved]
  - Muscle spasms [Recovered/Resolved]

NARRATIVE: CASE EVENT DATE: 20070525
